FAERS Safety Report 10476038 (Version 1)
Quarter: 2014Q3

REPORT INFORMATION
  Report Type: Spontaneous
  Country: GB (occurrence: GB)
  Receive Date: 20140925
  Receipt Date: 20140925
  Transmission Date: 20150326
  Serious: Yes (Disabling)
  Sender: FDA-Public Use
  Company Number: GB-PFIZER INC-2014262360

PATIENT
  Age: 55 Year
  Sex: Female
  Weight: 110.21 kg

DRUGS (6)
  1. TYLEX [Concomitant]
     Active Substance: ACETAMINOPHEN\CODEINE PHOSPHATE
  2. PERINDOPRIL TERT-BUTYLAMINE [Concomitant]
  3. PREGABALIN. [Suspect]
     Active Substance: PREGABALIN
     Indication: FIBROMYALGIA
     Dosage: 150 MG, 2X/DAY
     Route: 048
     Dates: start: 20140314
  4. LOPERAMIDE [Concomitant]
     Active Substance: LOPERAMIDE
  5. BENDROFLUMETHIAZIDE [Concomitant]
     Active Substance: BENDROFLUMETHIAZIDE
  6. SERTRALINE [Concomitant]
     Active Substance: SERTRALINE HYDROCHLORIDE

REACTIONS (3)
  - Suicidal ideation [Recovered/Resolved]
  - Dry eye [Recovering/Resolving]
  - Dysthymic disorder [Recovered/Resolved with Sequelae]

NARRATIVE: CASE EVENT DATE: 20140404
